FAERS Safety Report 16876578 (Version 1)
Quarter: 2019Q4

REPORT INFORMATION
  Report Type: Spontaneous
  Country: SE (occurrence: SE)
  Receive Date: 20191002
  Receipt Date: 20191002
  Transmission Date: 20200122
  Serious: Yes (Hospitalization, Other)
  Sender: FDA-Public Use
  Company Number: SE-ACCORD-156180

PATIENT
  Age: 75 Year
  Sex: Male

DRUGS (23)
  1. OXIS [Concomitant]
     Active Substance: FORMOTEROL FUMARATE
  2. ALLOPURINOL. [Concomitant]
     Active Substance: ALLOPURINOL
  3. KALCIPOS-D [Concomitant]
     Active Substance: CALCIUM CARBONATE\CHOLECALCIFEROL
  4. ASACOL [Concomitant]
     Active Substance: MESALAMINE
  5. SOTALOL. [Concomitant]
     Active Substance: SOTALOL
  6. TROMBYL [Concomitant]
     Active Substance: ASPIRIN
  7. TRAMADOL ACTAVIS [Concomitant]
     Active Substance: TRAMADOL
  8. COCILLANA-ETYFIN [Concomitant]
     Active Substance: ETHYLMORPHINE HYDROCHLORIDE\HERBALS
  9. ALENDRONAT ACCORD VECKOTABLETT [Concomitant]
  10. LASIX [Suspect]
     Active Substance: FUROSEMIDE
     Indication: PRODUCT USED FOR UNKNOWN INDICATION
  11. NORSPAN [Concomitant]
     Active Substance: BUPRENORPHINE
  12. ACETYLCYSTEIN MEDA [Concomitant]
  13. ZOLPIDEM [Concomitant]
     Active Substance: ZOLPIDEM TARTRATE
  14. PURINETHOL [Suspect]
     Active Substance: MERCAPTOPURINE
     Indication: PRODUCT USED FOR UNKNOWN INDICATION
  15. ALVEDON [Concomitant]
     Active Substance: ACETAMINOPHEN
  16. RAMIPRIL. [Suspect]
     Active Substance: RAMIPRIL
     Indication: PRODUCT USED FOR UNKNOWN INDICATION
  17. SPIRONOLACTONE. [Concomitant]
     Active Substance: SPIRONOLACTONE
  18. METFORMIN [Concomitant]
     Active Substance: METFORMIN HYDROCHLORIDE
  19. FOLACIN [Concomitant]
  20. PREDNISOLON PFIZER [Concomitant]
     Active Substance: PREDNISOLONE
  21. SPIRIVA [Concomitant]
     Active Substance: TIOTROPIUM BROMIDE MONOHYDRATE
  22. FUROSEMIDE. [Suspect]
     Active Substance: FUROSEMIDE
     Indication: PRODUCT USED FOR UNKNOWN INDICATION
     Route: 065
  23. OMEPRAZOLE. [Concomitant]
     Active Substance: OMEPRAZOLE

REACTIONS (2)
  - Acute kidney injury [Unknown]
  - Hepatotoxicity [Unknown]

NARRATIVE: CASE EVENT DATE: 20120723
